FAERS Safety Report 10586705 (Version 1)
Quarter: 2014Q4

REPORT INFORMATION
  Report Type: Spontaneous
  Country: US (occurrence: None)
  Receive Date: 20141114
  Receipt Date: 20141114
  Transmission Date: 20150529
  Serious: No
  Sender: FDA-Public Use
  Company Number: None

PATIENT
  Age: 8 Year
  Sex: Male
  Weight: 24.49 kg

DRUGS (2)
  1. VALPROIC ACID 500 MG [Suspect]
     Active Substance: VALPROIC ACID
     Indication: INTERMITTENT EXPLOSIVE DISORDER
     Route: 048
     Dates: start: 20140415
  2. VALPROIC ACID 500 MG [Suspect]
     Active Substance: VALPROIC ACID
     Indication: AUTISM
     Route: 048
     Dates: start: 20140415

REACTIONS (2)
  - Diarrhoea [None]
  - Abdominal discomfort [None]

NARRATIVE: CASE EVENT DATE: 20141110
